FAERS Safety Report 23193436 (Version 3)
Quarter: 2023Q4

REPORT INFORMATION
  Report Type: Report from Study
  Country: ES (occurrence: ES)
  Receive Date: 20231116
  Receipt Date: 20231129
  Transmission Date: 20240109
  Serious: Yes (Hospitalization)
  Sender: FDA-Public Use
  Company Number: ES-PFIZER INC-202300356275

PATIENT
  Age: 47 Year
  Sex: Male
  Weight: 102 kg

DRUGS (8)
  1. ELRANATAMAB [Suspect]
     Active Substance: ELRANATAMAB
     Indication: Plasma cell myeloma
     Dosage: 12 MG, ONCE
     Route: 058
     Dates: start: 20230828, end: 20230828
  2. ELRANATAMAB [Suspect]
     Active Substance: ELRANATAMAB
     Dosage: 32 MG, ONCE
     Route: 058
     Dates: start: 20230901, end: 20230901
  3. OMEPRAZOLE [Concomitant]
     Active Substance: OMEPRAZOLE
     Dosage: 20 MG, Q24H
     Route: 048
     Dates: start: 20230414
  4. UNSPECIFIED INGREDIENT [Concomitant]
     Active Substance: UNSPECIFIED INGREDIENT
     Dosage: 150 MG, Q24H
     Route: 058
     Dates: start: 20230814
  5. CALCIUM CARBONATE\CHOLECALCIFEROL [Concomitant]
     Active Substance: CALCIUM CARBONATE\CHOLECALCIFEROL
     Dosage: 1 CAPSUE, Q12H
     Route: 048
     Dates: start: 20230414
  6. HYDROXIL [Concomitant]
     Dosage: 1 CAPSULE, Q23H
     Route: 048
     Dates: start: 20230414
  7. ACYCLOVIR [Concomitant]
     Active Substance: ACYCLOVIR
     Dosage: 800 MG, Q12H
     Route: 048
     Dates: start: 20230614
  8. FOLIC ACID [Concomitant]
     Active Substance: FOLIC ACID
     Dosage: 5 MG, Q24H
     Route: 048
     Dates: start: 20230614

REACTIONS (1)
  - Headache [Recovered/Resolved]

NARRATIVE: CASE EVENT DATE: 20230903
